FAERS Safety Report 6840863-3 (Version None)
Quarter: 2010Q3

REPORT INFORMATION
  Report Type: 
  Country: None (occurrence: None)
  Receive Date: 20100714
  Receipt Date: 20070621
  Transmission Date: 20110219
  Serious: Yes (Other)
  Sender: FDA-Public Use
  Company Number: US-PFIZER INC-2007051289

PATIENT
  Sex: Female
  Weight: 71.2 kg

DRUGS (6)
  1. CHANTIX [Suspect]
     Indication: SMOKING CESSATION THERAPY
     Dates: start: 20070614
  2. CENESTIN [Concomitant]
     Indication: MENOPAUSE
  3. DARVOCET [Concomitant]
  4. VYTORIN [Concomitant]
  5. REMICADE [Concomitant]
     Route: 042
  6. METHOTREXATE [Concomitant]
     Route: 042

REACTIONS (6)
  - ABDOMINAL DISTENSION [None]
  - ASTHENIA [None]
  - DIZZINESS [None]
  - DYSPEPSIA [None]
  - NAUSEA [None]
  - WEIGHT INCREASED [None]
